FAERS Safety Report 4503174-7 (Version None)
Quarter: 2004Q4

REPORT INFORMATION
  Report Type: 
  Country: None (occurrence: None)
  Receive Date: 20041117
  Receipt Date: 20011019
  Transmission Date: 20050328
  Serious: Yes (Hospitalization, Disabling)
  Sender: FDA-Public Use
  Company Number: US-MERCK-01102728

PATIENT
  Age: 83 Year
  Sex: Female

DRUGS (9)
  1. VIOXX [Suspect]
     Indication: OSTEOARTHRITIS
     Route: 048
     Dates: start: 20010401
  2. VIOXX [Suspect]
     Route: 048
     Dates: start: 20011001, end: 20011011
  3. XALATAN [Concomitant]
     Indication: GLAUCOMA
     Route: 047
  4. ATENOLOL [Concomitant]
     Indication: HYPERTENSION
     Route: 065
  5. VERAPAMIL [Concomitant]
     Indication: HYPERTENSION
     Route: 065
  6. HYDRODIURIL [Concomitant]
     Indication: HYPERTENSION
     Route: 065
  7. ZOCOR [Concomitant]
     Route: 065
  8. PRINIVIL [Concomitant]
     Indication: HYPERTENSION
     Route: 065
  9. TIMOLOL [Concomitant]
     Route: 065

REACTIONS (2)
  - CEREBROVASCULAR ACCIDENT [None]
  - DEMENTIA [None]
